FAERS Safety Report 7353562-9 (Version None)
Quarter: 2011Q1

REPORT INFORMATION
  Report Type: 
  Country: None (occurrence: None)
  Receive Date: 20110315
  Receipt Date: 20110302
  Transmission Date: 20110831
  Serious: Yes (Hospitalization)
  Sender: FDA-Public Use
  Company Number: US-MYLANLABS-2011S1004299

PATIENT
  Age: 70 Year
  Sex: Female

DRUGS (10)
  1. ATENOLOL [Concomitant]
     Route: 065
  2. OXALIPLATIN [Concomitant]
     Indication: ADENOCARCINOMA
     Route: 065
  3. OMEPRAZOLE [Concomitant]
     Route: 065
  4. APREPITANT [Concomitant]
     Route: 065
  5. FOLINIC ACID [Suspect]
     Indication: ADENOCARCINOMA
     Route: 065
  6. WARFARIN [Concomitant]
     Route: 065
  7. DEXAMETHASONE [Concomitant]
     Route: 065
  8. FLUOROURACIL [Suspect]
     Indication: ADENOCARCINOMA
     Dosage: 2.4 G/M2 AS A 46H CONTINUOUS INFUSION EVERY 2 WEEKS
     Route: 041
  9. BEVACIZUMAB [Concomitant]
     Indication: ADENOCARCINOMA
     Route: 065
  10. HYDROCHLOROTHIAZIDE [Concomitant]
     Route: 065

REACTIONS (1)
  - HYPERAMMONAEMIC ENCEPHALOPATHY [None]
